FAERS Safety Report 10732324 (Version 1)
Quarter: 2015Q1

REPORT INFORMATION
  Report Type: Spontaneous
  Country: None (occurrence: KP)
  Receive Date: 20150123
  Receipt Date: 20150123
  Transmission Date: 20150721
  Serious: Yes (Other)
  Sender: FDA-Public Use
  Company Number: KP-CIPLA LTD.-2015KP00442

PATIENT

DRUGS (7)
  1. DIDANOSINE. [Suspect]
     Active Substance: DIDANOSINE
     Dosage: UNK
     Dates: start: 199901
  2. RALTEGRAVIR [Suspect]
     Active Substance: RALTEGRAVIR
     Dosage: UNK
     Dates: start: 201007
  3. KOREAN RED GINSENG [Suspect]
     Active Substance: DIETARY SUPPLEMENT
     Dosage: 4080 G
  4. EFAVIRENZ [Suspect]
     Active Substance: EFAVIRENZ
     Dosage: UNK
     Dates: start: 200201
  5. ABACAVIR [Suspect]
     Active Substance: ABACAVIR
     Dosage: UNK
     Dates: start: 201007
  6. LAMIVUDINE. [Suspect]
     Active Substance: LAMIVUDINE
     Dosage: UNK
     Dates: start: 200201
  7. ZIDOVUDINE. [Suspect]
     Active Substance: ZIDOVUDINE
     Dosage: UNK
     Dates: start: 199901

REACTIONS (8)
  - Hepatic cirrhosis [Unknown]
  - Oral candidiasis [Unknown]
  - Haematoma [Unknown]
  - Gastroenteritis [None]
  - Drug resistance [Unknown]
  - Splenomegaly [Unknown]
  - Weight decreased [Unknown]
  - Joint arthroplasty [Unknown]

NARRATIVE: CASE EVENT DATE: 199809
